FAERS Safety Report 11685517 (Version 1)
Quarter: 2015Q4

REPORT INFORMATION
  Report Type: Spontaneous
  Country: NL (occurrence: NL)
  Receive Date: 20151030
  Receipt Date: 20151030
  Transmission Date: 20160304
  Serious: Yes (Other)
  Sender: FDA-Public Use
  Company Number: PHHY2015NL136551

PATIENT
  Sex: Female

DRUGS (2)
  1. AFINITOR [Suspect]
     Active Substance: EVEROLIMUS
     Indication: PRODUCT USED FOR UNKNOWN INDICATION
     Dosage: UNK
     Route: 065
     Dates: start: 20130213
  2. AROMASIN [Concomitant]
     Active Substance: EXEMESTANE
     Indication: PRODUCT USED FOR UNKNOWN INDICATION
     Dosage: UNK
     Route: 065
     Dates: start: 20130213

REACTIONS (18)
  - Dry skin [Unknown]
  - Erythema [Unknown]
  - Pyrexia [Unknown]
  - Tumour flare [Unknown]
  - Liver tenderness [Unknown]
  - Hypogeusia [Unknown]
  - Inflammatory pain [Unknown]
  - Stomatitis [Unknown]
  - Hepatic enzyme increased [Unknown]
  - Thirst [Unknown]
  - Fatigue [Unknown]
  - Decreased appetite [Unknown]
  - Oral pain [Recovering/Resolving]
  - Drug ineffective [Unknown]
  - Pain [Unknown]
  - Localised infection [Unknown]
  - Diarrhoea [Unknown]
  - Dry mouth [Unknown]

NARRATIVE: CASE EVENT DATE: 20130425
